FAERS Safety Report 6000587-1 (Version None)
Quarter: 2008Q4

REPORT INFORMATION
  Report Type: 
  Country: None (occurrence: None)
  Receive Date: 20081215
  Receipt Date: 20081203
  Transmission Date: 20090506
  Serious: Yes (Hospitalization)
  Sender: FDA-Public Use
  Company Number: US-ROCHE-602174

PATIENT
  Sex: Female

DRUGS (2)
  1. CAPECITABINE [Suspect]
     Dosage: 825 MG/M2, Q12H
     Route: 048
     Dates: start: 20051205
  2. BEVACIZUMAB [Suspect]
     Dosage: 5 MG/KG, UNK
     Route: 042
     Dates: start: 20051205

REACTIONS (1)
  - DUODENAL OBSTRUCTION [None]
